FAERS Safety Report 5503222-1 (Version None)
Quarter: 2007Q4

REPORT INFORMATION
  Report Type: 
  Country: None (occurrence: None)
  Receive Date: 20071031
  Receipt Date: 20071023
  Transmission Date: 20080405
  Serious: Yes (Life-Threatening, Hospitalization)
  Sender: FDA-Public Use
  Company Number: FR-AMGEN-US239487

PATIENT
  Sex: Female

DRUGS (5)
  1. ENBREL [Suspect]
     Indication: ANKYLOSING SPONDYLITIS
     Route: 058
     Dates: start: 20070116, end: 20070313
  2. REMICADE [Suspect]
     Indication: ANKYLOSING SPONDYLITIS
     Dosage: 300 MG PER CYCLE
     Route: 042
     Dates: start: 20050515, end: 20061215
  3. REMICADE [Suspect]
     Dosage: 300 MG EVERY 1 CYC
     Route: 042
     Dates: start: 20070410, end: 20070410
  4. REMICADE [Suspect]
     Dosage: 300 MG EVERY 1 CYC
     Route: 042
     Dates: start: 20070424, end: 20070424
  5. REMICADE [Suspect]
     Dosage: 300 MG EVERY 1 CYC
     Route: 042
     Dates: start: 20070522, end: 20070522

REACTIONS (4)
  - PERICARDIAL EFFUSION [None]
  - PERICARDIAL RUB [None]
  - RHEUMATOID FACTOR POSITIVE [None]
  - SYSTEMIC LUPUS ERYTHEMATOSUS [None]
